FAERS Safety Report 9511040 (Version 1)
Quarter: 2013Q1

REPORT INFORMATION
  Report Type: Spontaneous
  Country: US (occurrence: None)
  Receive Date: 20130305
  Receipt Date: 20130305
  Transmission Date: 20140127
  Serious: Yes (Hospitalization, Other)
  Sender: FDA-Public Use
  Company Number: 163-21880-11072958

PATIENT
  Age: 64 Year
  Sex: Male
  Weight: 100.7 kg

DRUGS (20)
  1. REVLIMID (LENALIDOMIDE) (CAPSULES) [Suspect]
     Indication: PLASMA CELL MYELOMA
     Dosage: 5 MG, 14 IN 21 D, PO
     Route: 048
     Dates: start: 20110709, end: 20110808
  2. DEXAMETHASONE (DEXAMETHASONE) (4 MILLIGRAM, TABLETS) [Concomitant]
  3. HYDROCHLOROTHIAZIDE (HYDROCHLOROTHIAZIDE) (TABLETS) [Concomitant]
  4. TYLENOL 8 HOUR (PARACETAMOL) (TABLETS) [Concomitant]
  5. VELCADE [Concomitant]
  6. ALLOPURINOL (ALLOPURINOL) (UNKNOWN) [Concomitant]
  7. AMLODIPINE (AMLODIPINE) (UNKNOWN) [Concomitant]
  8. ARTHROTEC (ARTHROTEC) (UNKNOWN) [Concomitant]
  9. ASPIRIN (ACETYLSALICYLIC ACID) (UNKNOWN) (ACETYLSALICYLIC ACID) [Concomitant]
  10. CRESTOR (ROSUVASTATIN) (UNKNOWN) [Concomitant]
  11. FAMOTIDINE (FAMOTIDINE) (UNKNOWN) [Concomitant]
  12. FENOFIBRATE (FENOFIBRATE) (UNKNOWN) [Concomitant]
  13. GLYBURIDE (GLIBRENCLAMIDE) (TABLETS) [Concomitant]
  14. VICODIN (VICODIN) (UNKNOWN) [Concomitant]
  15. IMDUR (ISOSORBIDE MONONITRATE) (UNKNOWN) [Concomitant]
  16. METOPROLOL (METOPROLOL) (UNKNOWN) [Concomitant]
  17. NITROGLYCERINE (GLYCERYL TRINITRATE) (UNKNOWN) [Concomitant]
  18. POTASSIUM CHLORIDE (POTASSIUM CHLORIDE) (UNKNOWN) [Concomitant]
  19. LOVENOX (HEPARIN-FRACTION, SODIUM SALT) (UNKNOWN) [Concomitant]
  20. FLUID (BARIUM SULFATE) (INJECTION) [Concomitant]

REACTIONS (4)
  - Tumour lysis syndrome [None]
  - Rash maculo-papular [None]
  - Generalised erythema [None]
  - Plasma cell myeloma [None]
